FAERS Safety Report 11090745 (Version 1)
Quarter: 2015Q2

REPORT INFORMATION
  Report Type: Spontaneous
  Country: PL (occurrence: PL)
  Receive Date: 20150505
  Receipt Date: 20150505
  Transmission Date: 20150821
  Serious: Yes (Other)
  Sender: FDA-Public Use
  Company Number: PHHY2015PL051134

PATIENT
  Age: 16 Year
  Sex: Male
  Weight: 39.9 kg

DRUGS (1)
  1. OMNITROP [Suspect]
     Active Substance: SOMATROPIN
     Indication: HYPOPITUITARISM
     Dosage: 1.1-1.2 MG
     Route: 058
     Dates: start: 20131206, end: 20141202

REACTIONS (5)
  - Osteonecrosis [Unknown]
  - Osteochondrosis [Not Recovered/Not Resolved]
  - Foot deformity [Unknown]
  - Patellofemoral pain syndrome [Unknown]
  - Arthralgia [Unknown]

NARRATIVE: CASE EVENT DATE: 20141202
